FAERS Safety Report 9413370 (Version 2)
Quarter: 2013Q3

REPORT INFORMATION
  Report Type: Spontaneous
  Country: FR (occurrence: None)
  Receive Date: 20130717
  Receipt Date: 20130815
  Transmission Date: 20140515
  Serious: Yes (Death, Hospitalization)
  Sender: FDA-Public Use
  Company Number: 1796674

PATIENT
  Age: 73 Year
  Sex: Male

DRUGS (8)
  1. CARBOPLATIN [Suspect]
     Indication: CHEMOTHERAPY
     Route: 041
     Dates: start: 20130404, end: 20130404
  2. PACLITAXEL [Suspect]
     Indication: CHEMOTHERAPY
     Route: 042
     Dates: start: 20130404
  3. SELOKEN /00376902/ [Concomitant]
  4. KARDEGIC [Concomitant]
  5. TORENTAL LP [Concomitant]
  6. LISINOPRIL [Concomitant]
  7. CRESTOR [Concomitant]
  8. GLUCOPHAGE [Concomitant]

REACTIONS (30)
  - Febrile bone marrow aplasia [None]
  - Asthenia [None]
  - Decreased appetite [None]
  - Diarrhoea [None]
  - Dyspnoea [None]
  - Pulmonary congestion [None]
  - Agranulocytosis [None]
  - Anaemia [None]
  - Blood lactic acid [None]
  - Thrombocytopenia [None]
  - Blood potassium decreased [None]
  - Blood glucose increased [None]
  - Blood calcium decreased [None]
  - Blood chloride decreased [None]
  - Blood bicarbonate increased [None]
  - Pain [None]
  - Trismus [None]
  - Blood lactic acid abnormal [None]
  - Hypoxia [None]
  - Klebsiella bacteraemia [None]
  - Acute coronary syndrome [None]
  - Ventricular tachycardia [None]
  - Septic shock [None]
  - Fungal test positive [None]
  - Atrial fibrillation [None]
  - No therapeutic response [None]
  - Renal failure acute [None]
  - Dialysis [None]
  - Haemodynamic instability [None]
  - Haematotoxicity [None]
